FAERS Safety Report 24025343 (Version 5)
Quarter: 2024Q3

REPORT INFORMATION
  Report Type: Report from Study
  Country: VN (occurrence: VN)
  Receive Date: 20240628
  Receipt Date: 20240710
  Transmission Date: 20241016
  Serious: No
  Sender: ROCHE
  Company Number: VN-ROCHE-3245484

PATIENT
  Age: 65 Year
  Sex: Female
  Weight: 50.0 kg

DRUGS (5)
  1. ALECENSA [Suspect]
     Active Substance: ALECTINIB HYDROCHLORIDE
     Indication: Non-small cell lung cancer metastatic
     Dosage: ON 08/JAN/2023, RECENT DOSE OF 600 MG PRIOR TO ADVERSE EVENT
     Route: 048
     Dates: start: 20221014
  2. ALECENSA [Suspect]
     Active Substance: ALECTINIB HYDROCHLORIDE
     Route: 048
     Dates: start: 20220924
  3. CERITINIB [Concomitant]
     Active Substance: CERITINIB
     Dates: start: 20230109, end: 20230109
  4. CERITINIB [Concomitant]
     Active Substance: CERITINIB
     Dates: start: 20230410
  5. CERITINIB [Concomitant]
     Active Substance: CERITINIB
     Dates: start: 20230713

REACTIONS (1)
  - Anaemia [Recovered/Resolved]

NARRATIVE: CASE EVENT DATE: 20221110
